FAERS Safety Report 9337875 (Version 1)
Quarter: 2013Q2

REPORT INFORMATION
  Report Type: Spontaneous
  Country: US (occurrence: US)
  Receive Date: 20130608
  Receipt Date: 20130608
  Transmission Date: 20140414
  Serious: Yes (Other)
  Sender: FDA-Public Use
  Company Number: US-PFIZER INC-2013172970

PATIENT
  Age: 75 Year
  Sex: Female
  Weight: 68 kg

DRUGS (6)
  1. DILANTIN [Suspect]
     Indication: CONVULSION
     Dosage: 200 MG, 2X/DAY (100MG TWO CAPSULES IN MORNING AND TWO CAPSULES AT NIGHT)
     Route: 048
  2. DILANTIN [Suspect]
     Indication: EPILEPSY
  3. PHENOBARBITAL [Suspect]
     Indication: CONVULSION
     Dosage: 97.2 MG, 2X/DAY (32.4MG ONE IN MORNING AND TWO AT NIGHT)
  4. PHENOBARBITAL [Suspect]
     Indication: EPILEPSY
  5. BUSPIRONE [Concomitant]
     Dosage: 15 MG, 2X/DAY
  6. DONEPEZIL [Concomitant]
     Dosage: 10MG DAILY

REACTIONS (2)
  - Dementia [Unknown]
  - Drug ineffective [Unknown]
